FAERS Safety Report 9634034 (Version 2)
Quarter: 2014Q1

REPORT INFORMATION
  Report Type: Spontaneous
  Country: US (occurrence: US)
  Receive Date: 20131021
  Receipt Date: 20140109
  Transmission Date: 20141002
  Serious: No
  Sender: FDA-Public Use
  Company Number: US-009507513-1310USA004109

PATIENT
  Sex: Male

DRUGS (6)
  1. JANUVIA [Suspect]
     Indication: DIABETES MELLITUS
     Dosage: 100 MG/ ONCE DAILY
     Route: 048
     Dates: start: 201302, end: 201311
  2. PRANDIN [Concomitant]
  3. PREDNISONE [Concomitant]
  4. DIGOXIN [Concomitant]
  5. FLOMAX (MORNIFLUMATE) [Concomitant]
  6. PROSCAR [Concomitant]
     Route: 048

REACTIONS (2)
  - Pancreatic cyst [Not Recovered/Not Resolved]
  - Alopecia [Not Recovered/Not Resolved]
